FAERS Safety Report 16981919 (Version 2)
Quarter: 2020Q1

REPORT INFORMATION
  Report Type: Spontaneous
  Country: US (occurrence: US)
  Receive Date: 20191101
  Receipt Date: 20200121
  Transmission Date: 20200409
  Serious: Yes (Hospitalization, Other)
  Sender: FDA-Public Use
  Company Number: US-009507513-1910USA016047

PATIENT
  Age: 75 Year
  Sex: Male

DRUGS (4)
  1. AXITINIB [Suspect]
     Active Substance: AXITINIB
     Indication: RENAL CANCER
     Dosage: 1ST: 1 MONTH EARLIER
  2. PEMBROLIZUMAB. [Suspect]
     Active Substance: PEMBROLIZUMAB
     Indication: RENAL CANCER
     Dosage: 1ST: 1 MONTH EARLIER
  3. PEMBROLIZUMAB. [Suspect]
     Active Substance: PEMBROLIZUMAB
     Dosage: 2ND: 5 DAYS BEFORE ADMISSION
  4. AXITINIB [Suspect]
     Active Substance: AXITINIB
     Dosage: 2ND: 5 DAYS BEFORE ADMISSION

REACTIONS (3)
  - Atrioventricular block complete [Unknown]
  - Myocarditis [Unknown]
  - Coronary artery stenosis [Unknown]
